FAERS Safety Report 12775977 (Version 2)
Quarter: 2016Q3

REPORT INFORMATION
  Report Type: Spontaneous
  Country: JP (occurrence: JP)
  Receive Date: 20160923
  Receipt Date: 20160929
  Transmission Date: 20161109
  Serious: Yes (Life-Threatening, Hospitalization, Other)
  Sender: FDA-Public Use
  Company Number: JP-009507513-1511JPN015501

PATIENT
  Age: 68 Year
  Sex: Male
  Weight: 54 kg

DRUGS (5)
  1. CEFAZOLIN SODIUM. [Concomitant]
     Active Substance: CEFAZOLIN SODIUM
     Dosage: DAILY DOSAGE UNKNOWN
     Route: 065
  2. BRIDION [Suspect]
     Active Substance: SUGAMMADEX
     Indication: NEUROMUSCULAR BLOCKADE REVERSAL
     Dosage: 200 MG, QD (DIVIDED DOSE FREQUENCY UNKNOWN)
     Route: 042
     Dates: start: 20151110, end: 20151110
  3. DIPRIVAN [Concomitant]
     Active Substance: PROPOFOL
     Dosage: DAILY DOSAGE UNKNOWN
     Route: 065
  4. ESLAX [Suspect]
     Active Substance: ROCURONIUM BROMIDE
     Dosage: DAILY DOSAGE UNKNOWN
     Route: 042
     Dates: start: 20151110, end: 20151110
  5. ANAPEINE [Concomitant]
     Active Substance: ROPIVACAINE HYDROCHLORIDE
     Dosage: DAILY DOSAGE UNKNOWN
     Route: 065

REACTIONS (3)
  - Anaphylactic shock [Recovered/Resolved]
  - Atrioventricular block complete [Unknown]
  - Hypotension [Recovering/Resolving]

NARRATIVE: CASE EVENT DATE: 20151110
